FAERS Safety Report 7569666-1 (Version None)
Quarter: 2011Q2

REPORT INFORMATION
  Report Type: 
  Country: None (occurrence: None)
  Receive Date: 20110624
  Receipt Date: 20110621
  Transmission Date: 20111010
  Serious: No
  Sender: FDA-Public Use
  Company Number: US-PFIZER INC-2011139878

PATIENT

DRUGS (1)
  1. RELISTOR [Suspect]
     Dosage: UNK
     Route: 058

REACTIONS (2)
  - FAECAL INCONTINENCE [None]
  - FREQUENT BOWEL MOVEMENTS [None]
